FAERS Safety Report 19609535 (Version 1)
Quarter: 2021Q3

REPORT INFORMATION
  Report Type: Spontaneous
  Country: US (occurrence: US)
  Receive Date: 20210722
  Receipt Date: 20210722
  Transmission Date: 20211014
  Serious: No
  Sender: FDA-Public Use
  Company Number: None

PATIENT
  Age: 65 Year
  Sex: Male
  Weight: 102.06 kg

DRUGS (1)
  1. BIMATOPROST?0.03% [Suspect]
     Active Substance: BIMATOPROST
     Indication: GLAUCOMA
     Dosage: ?OTHER STRENGTH:0.03%;?OTHER DOSE:0.03%;?
     Route: 047
     Dates: start: 20210630

REACTIONS (4)
  - Eye pain [None]
  - Product container issue [None]
  - Eye injury [None]
  - Instillation site complication [None]

NARRATIVE: CASE EVENT DATE: 20210714
